FAERS Safety Report 4552240-9 (Version None)
Quarter: 2005Q1

REPORT INFORMATION
  Report Type: 
  Country: None (occurrence: None)
  Receive Date: 20041217
  Receipt Date: 20041012
  Transmission Date: 20050727
  Serious: No
  Sender: FDA-Public Use
  Company Number: 2004-BP-09854BP

PATIENT
  Age: 67 Year
  Sex: Male

DRUGS (31)
  1. SPIRIVA [Suspect]
     Indication: CHRONIC OBSTRUCTIVE PULMONARY DISEASE
     Dosage: 18 MCG (18 MCG), IH
     Route: 055
     Dates: start: 20040901
  2. BEXTRA [Concomitant]
  3. COLCHINE (COLCHINE) [Concomitant]
  4. ALLOPURINOL [Concomitant]
  5. FOSAMAX [Concomitant]
  6. NITROGLYCERIN [Concomitant]
  7. ALBUTEROL/IPRATROPIUM [Concomitant]
  8. FLONASE [Concomitant]
  9. FLOVENT [Concomitant]
  10. SEREVENT [Concomitant]
  11. ASTELIN [Concomitant]
  12. THEO-24 (THEOPHYLLINE) [Concomitant]
  13. VERAPAMIL [Concomitant]
  14. SINGULAIR (MONTELUKAST) [Concomitant]
  15. ASPIRIN [Concomitant]
  16. HYZAAR [Concomitant]
  17. ZOCOR [Concomitant]
  18. ISOSORBIDE (ISOSORBIDE) [Concomitant]
  19. XOPENEX [Concomitant]
  20. CITRACEL [Concomitant]
  21. FUROSEMIDE (FUROSEMIDE) [Concomitant]
  22. KLOR-CON [Concomitant]
  23. XENICAL [Concomitant]
  24. HYDROCORTISONE CREAM 0.1% [Concomitant]
  25. HYDROCORTISONE 0.2% [Concomitant]
  26. QUININE SULFATE (QUININE SULFATE) [Concomitant]
  27. CEFUROXIME [Concomitant]
  28. ULTRACET (ULTRACET) [Concomitant]
  29. LEVAQUIN [Concomitant]
  30. SSKI (POTASSIIUM IODIDE) [Concomitant]
  31. CLINDAMYCIN (CLINDAMYCIN) [Concomitant]

REACTIONS (1)
  - DRY MOUTH [None]
